FAERS Safety Report 10090445 (Version 1)
Quarter: 2014Q2

REPORT INFORMATION
  Report Type: Spontaneous
  Country: CO (occurrence: CO)
  Receive Date: 20140421
  Receipt Date: 20140421
  Transmission Date: 20141212
  Serious: Yes (Other)
  Sender: FDA-Public Use
  Company Number: CO-UCBSA-117480

PATIENT
  Age: 76 Year
  Sex: Female

DRUGS (5)
  1. NEUPRO [Suspect]
     Indication: PARKINSON^S DISEASE
     Dosage: DAILY DOSE: 4 MG
     Route: 062
     Dates: start: 20131212, end: 20140203
  2. LEVODOPA/CARBIDOPA [Concomitant]
     Dosage: 250/25 MG EACH 8 HOURS
  3. BIPERIDEN [Concomitant]
     Dosage: EACH 8 HOURS
  4. METFORMIN [Concomitant]
     Dosage: EACH 12 HOURS
  5. METOPROLOL [Concomitant]
     Dosage: EACH 12 HOURS

REACTIONS (7)
  - Mobility decreased [Not Recovered/Not Resolved]
  - Psychiatric symptom [Not Recovered/Not Resolved]
  - Nausea [Unknown]
  - Dizziness [Unknown]
  - Vomiting [Unknown]
  - Drug intolerance [Unknown]
  - Weight decreased [Unknown]
